FAERS Safety Report 7474426-6 (Version None)
Quarter: 2011Q2

REPORT INFORMATION
  Report Type: 
  Country: None (occurrence: None)
  Receive Date: 20110512
  Receipt Date: 20110216
  Transmission Date: 20111010
  Serious: No
  Sender: FDA-Public Use
  Company Number: US-BAYER-2011-015849

PATIENT
  Age: 48 Year
  Sex: Male

DRUGS (3)
  1. CHOLESTEROL MEDICINE [Concomitant]
     Indication: BLOOD CHOLESTEROL ABNORMAL
  2. AVELOX [Suspect]
     Indication: BRONCHITIS
     Dosage: DAILY DOSE 400 MG
     Route: 048
     Dates: start: 20110203, end: 20110204
  3. BLOOD PRESSURE MEDICINE [Concomitant]
     Indication: BLOOD PRESSURE ABNORMAL

REACTIONS (2)
  - EYE IRRITATION [None]
  - EYE SWELLING [None]
